FAERS Safety Report 4540339-2 (Version None)
Quarter: 2004Q4

REPORT INFORMATION
  Report Type: 
  Country: None (occurrence: None)
  Receive Date: 20041223
  Receipt Date: 20041208
  Transmission Date: 20050328
  Serious: Yes (Other)
  Sender: FDA-Public Use
  Company Number: USA-04-0252-STR

PATIENT
  Sex: Male

DRUGS (1)
  1. STRIANT [Suspect]

REACTIONS (5)
  - BONE PAIN [None]
  - MEDIASTINAL DISORDER [None]
  - MUSCULOSKELETAL DISORDER [None]
  - OROPHARYNGEAL SWELLING [None]
  - RESPIRATORY DISORDER [None]
